FAERS Safety Report 8503412-X (Version None)
Quarter: 2012Q3

REPORT INFORMATION
  Report Type: 
  Country: None (occurrence: None)
  Receive Date: 20120702
  Receipt Date: 20120621
  Transmission Date: 20120928
  Serious: Yes (Disabling)
  Sender: FDA-Public Use
  Company Number: AUR-APL-2012-02744

PATIENT
  Age: 72 Year
  Sex: Female
  Weight: 84 kg

DRUGS (9)
  1. BEZAFIBRATE (BEZAFIBRATE) [Concomitant]
  2. BISOPROLOL FUMARATE [Concomitant]
  3. LANSOPRAZOLE [Concomitant]
  4. ACETAMINOPHEN W/ CODEINE [Concomitant]
  5. PLAVIX [Concomitant]
  6. VALSARTAN [Concomitant]
  7. SIMVASTATIN [Suspect]
     Indication: PRODUCT USED FOR UNKNOWN INDICATION
  8. ASPIRIN [Concomitant]
  9. LEVOTHYROXINE SODIUM [Concomitant]

REACTIONS (3)
  - OEDEMA PERIPHERAL [None]
  - MASS [None]
  - PAIN [None]
